FAERS Safety Report 14543655 (Version 2)
Quarter: 2018Q1

REPORT INFORMATION
  Report Type: Report from Study
  Country: None (occurrence: CA)
  Receive Date: 20180216
  Receipt Date: 20180320
  Transmission Date: 20180509
  Serious: Yes (Death)
  Sender: FDA-Public Use
  Company Number: CA-ABBVIE-18P-028-2259197-00

PATIENT
  Sex: Female
  Weight: 77 kg

DRUGS (3)
  1. PENTOSTATIN. [Concomitant]
     Active Substance: PENTOSTATIN
     Indication: DISEASE PROGRESSION
     Route: 042
     Dates: start: 201704, end: 201801
  2. VENCLYXTO [Suspect]
     Active Substance: VENETOCLAX
     Indication: T-CELL PROLYMPHOCYTIC LEUKAEMIA
     Route: 048
     Dates: start: 2018, end: 20180205
  3. VENCLYXTO [Suspect]
     Active Substance: VENETOCLAX
     Indication: CHRONIC LYMPHOCYTIC LEUKAEMIA
     Route: 048
     Dates: start: 20180103, end: 2018

REACTIONS (2)
  - Off label use [Unknown]
  - Malignant neoplasm progression [Fatal]
